FAERS Safety Report 18023448 (Version 1)
Quarter: 2020Q3

REPORT INFORMATION
  Report Type: Spontaneous
  Country: US (occurrence: US)
  Receive Date: 20200715
  Receipt Date: 20200715
  Transmission Date: 20201103
  Serious: Yes (Other)
  Sender: FDA-Public Use
  Company Number: US-AUROBINDO-AUR-APL-2020-034334

PATIENT
  Age: 34 Year
  Sex: Female

DRUGS (8)
  1. PREDNISONE. [Suspect]
     Active Substance: PREDNISONE
     Indication: IMMUNE THROMBOCYTOPENIA
     Dosage: 40 MILLIGRAM, ONCE A DAY
     Route: 048
  2. METHYLPREDNISOLONE. [Suspect]
     Active Substance: METHYLPREDNISOLONE
     Indication: IMMUNE THROMBOCYTOPENIA
     Dosage: 500 MILLIGRAM, ONCE A DAY
     Route: 042
  3. LABETALOL [Suspect]
     Active Substance: LABETALOL\LABETALOL HYDROCHLORIDE
     Indication: HYPERTENSION
     Dosage: 200 MILLIGRAM, TWO TIMES A DAY
     Route: 048
  4. BETAMETHASONE. [Suspect]
     Active Substance: BETAMETHASONE
     Indication: MATERNAL THERAPY TO ENHANCE FOETAL LUNG MATURITY
     Dosage: 12 MILLIGRAM (2 DOSES)
     Route: 030
  5. ROMIPLOSTIM [Suspect]
     Active Substance: ROMIPLOSTIM
     Indication: IMMUNE THROMBOCYTOPENIA
     Dosage: 2 MICROGRAM/KILOGRAM
     Route: 065
  6. HEMABATE [Suspect]
     Active Substance: CARBOPROST TROMETHAMINE
     Indication: POSTPARTUM HAEMORRHAGE
     Dosage: 250 MICROGRAM
     Route: 030
  7. PREDNISONE. [Suspect]
     Active Substance: PREDNISONE
     Dosage: 90 MILLIGRAM, ONCE A DAY
     Route: 048
  8. TRANEXAMIC ACID. [Suspect]
     Active Substance: TRANEXAMIC ACID
     Indication: POSTPARTUM HAEMORRHAGE
     Dosage: 1000 MILLIGRAM
     Route: 042

REACTIONS (6)
  - Treatment failure [Unknown]
  - Maternal exposure during pregnancy [Unknown]
  - Condition aggravated [Unknown]
  - Thrombocytopenia [Unknown]
  - Maternal exposure during breast feeding [Unknown]
  - Platelet count decreased [Unknown]
